FAERS Safety Report 6068658-1 (Version None)
Quarter: 2009Q1

REPORT INFORMATION
  Report Type: 
  Country: None (occurrence: None)
  Receive Date: 20090206
  Receipt Date: 20090205
  Transmission Date: 20090719
  Serious: Yes (Other)
  Sender: FDA-Public Use
  Company Number: A0765508A

PATIENT
  Age: 71 Year
  Sex: Female
  Weight: 58 kg

DRUGS (7)
  1. ROSIGLITAZONE [Suspect]
     Route: 048
     Dates: start: 20080625
  2. REMINYL [Concomitant]
     Dosage: 24MG PER DAY
     Route: 048
     Dates: start: 20050824
  3. COZAAR [Concomitant]
  4. CRESTOR [Concomitant]
  5. ACETOSAL [Concomitant]
  6. VITAMIN D3 [Concomitant]
     Dates: start: 20050101
  7. PAROXETINE HCL [Concomitant]
     Dosage: 10MG PER DAY
     Dates: start: 20070501

REACTIONS (8)
  - ABDOMINAL PAIN [None]
  - CIRCULATORY COLLAPSE [None]
  - FAECAL INCONTINENCE [None]
  - HALLUCINATION [None]
  - MIOSIS [None]
  - NAUSEA [None]
  - STATUS EPILEPTICUS [None]
  - URINARY INCONTINENCE [None]
